FAERS Safety Report 6286454-7 (Version None)
Quarter: 2009Q3

REPORT INFORMATION
  Report Type: 
  Country: None (occurrence: None)
  Receive Date: 20090728
  Receipt Date: 20090720
  Transmission Date: 20100115
  Serious: Yes (Hospitalization, Other)
  Sender: FDA-Public Use
  Company Number: A0798878A

PATIENT
  Sex: Female
  Weight: 70 kg

DRUGS (3)
  1. SERETIDE [Suspect]
     Indication: BRONCHITIS
     Dosage: 1PUFF TWICE PER DAY
     Route: 055
     Dates: start: 20010101
  2. SPIRIVA [Concomitant]
     Dosage: 1PUFF PER DAY
     Dates: start: 20010101
  3. LOSARTAN POTASSIUM [Concomitant]
     Dosage: 50MG IN THE MORNING

REACTIONS (3)
  - ACCIDENT [None]
  - ANKLE OPERATION [None]
  - LIMB OPERATION [None]
